FAERS Safety Report 5172181-6 (Version None)
Quarter: 2006Q4

REPORT INFORMATION
  Report Type: 
  Country: None (occurrence: None)
  Receive Date: 20061205
  Receipt Date: 20061120
  Transmission Date: 20070319
  Serious: Yes (Hospitalization, Other)
  Sender: FDA-Public Use
  Company Number: 2006111339

PATIENT
  Age: 40 Year
  Sex: Female

DRUGS (8)
  1. GEODON [Suspect]
     Indication: BIPOLAR DISORDER
     Dosage: 80 MG (40 MG, 2 IN 1 D), ORAL
     Route: 048
     Dates: start: 20060207, end: 20060315
  2. GEODON [Suspect]
     Indication: PSYCHOTIC DISORDER
     Dosage: 80 MG (40 MG, 2 IN 1 D), ORAL
     Route: 048
     Dates: start: 20060207, end: 20060315
  3. LITHIUM CARBONATE [Suspect]
     Dosage: 1350 (450 MG, 3 IN 1 D)
  4. TRAZODONE HCL [Suspect]
  5. CLONAZEPAM [Concomitant]
  6. ZYPREXA [Concomitant]
  7. PROPRANOLOL [Concomitant]
  8. LEXAPRO [Concomitant]

REACTIONS (6)
  - AFFECT LABILITY [None]
  - INFECTION [None]
  - MANIA [None]
  - PYREXIA [None]
  - STEVENS-JOHNSON SYNDROME [None]
  - WEIGHT INCREASED [None]
